FAERS Safety Report 21825453 (Version 1)
Quarter: 2023Q1

REPORT INFORMATION
  Report Type: Spontaneous
  Country: US (occurrence: None)
  Receive Date: 20230105
  Receipt Date: 20230105
  Transmission Date: 20230417
  Serious: Yes (Hospitalization)
  Sender: FDA-Public Use
  Company Number: None

PATIENT
  Age: 65 Year
  Sex: Male

DRUGS (1)
  1. ENTYVIO [Suspect]
     Active Substance: VEDOLIZUMAB
     Indication: Proctitis ulcerative
     Dosage: OTHER FREQUENCY : OTHER;?
     Route: 042
     Dates: start: 202209, end: 20221011

REACTIONS (1)
  - Colectomy [None]

NARRATIVE: CASE EVENT DATE: 20221226
